FAERS Safety Report 17233422 (Version 1)
Quarter: 2020Q1

REPORT INFORMATION
  Report Type: Spontaneous
  Country: US (occurrence: US)
  Receive Date: 20200104
  Receipt Date: 20200104
  Transmission Date: 20200409
  Serious: No
  Sender: FDA-Public Use
  Company Number: US-TEVA-2019-US-1161434

PATIENT
  Sex: Male

DRUGS (2)
  1. DIAZEPAM. [Suspect]
     Active Substance: DIAZEPAM
     Indication: TENSION
     Dosage: TABLETS WERE LIGHT BLUE IN COLOR
     Route: 065
     Dates: start: 201912
  2. DIAZEPAM. [Suspect]
     Active Substance: DIAZEPAM
     Indication: STRESS

REACTIONS (1)
  - Drug ineffective [Unknown]

NARRATIVE: CASE EVENT DATE: 201912
